FAERS Safety Report 5902598-0 (Version None)
Quarter: 2008Q3

REPORT INFORMATION
  Report Type: 
  Country: None (occurrence: None)
  Receive Date: 20080926
  Receipt Date: 20080923
  Transmission Date: 20090109
  Serious: Yes (Other)
  Sender: FDA-Public Use
  Company Number: 1000001072

PATIENT
  Age: 68 Year
  Sex: Male

DRUGS (14)
  1. CELEXA [Suspect]
     Indication: ANXIETY
     Dosage: 40 MG (40 MG, 1 IN 1 D), ORAL
     Route: 048
     Dates: start: 20080801, end: 20080909
  2. CELEXA [Suspect]
     Indication: DEPRESSION
     Dosage: 40 MG (40 MG, 1 IN 1 D), ORAL
     Route: 048
     Dates: start: 20080801, end: 20080909
  3. CELEXA [Suspect]
     Indication: ANXIETY
     Dosage: 20 MG (20 MG, 1 IN 1 D), ORAL
     Route: 048
     Dates: start: 20080601, end: 20080801
  4. CELEXA [Suspect]
     Indication: DEPRESSION
     Dosage: 20 MG (20 MG, 1 IN 1 D), ORAL
     Route: 048
     Dates: start: 20080601, end: 20080801
  5. CELEXA [Suspect]
     Indication: ANXIETY
     Dosage: 20 MG (20 MG, 1 IN 1 D), ORAL
     Route: 048
     Dates: start: 20080910
  6. CELEXA [Suspect]
     Indication: DEPRESSION
     Dosage: 20 MG (20 MG, 1 IN 1 D), ORAL
     Route: 048
     Dates: start: 20080910
  7. GLUCOPHAGE [Concomitant]
  8. AVANDIA [Concomitant]
  9. GLYBURIDE [Concomitant]
  10. TRENTAL [Concomitant]
  11. ASPIRIN [Concomitant]
  12. EZETIMIBE [Concomitant]
  13. LISINOPRIL [Concomitant]
  14. VALIUM [Concomitant]

REACTIONS (7)
  - BALANCE DISORDER [None]
  - BLOOD GLUCOSE DECREASED [None]
  - CONFUSIONAL STATE [None]
  - DIPLOPIA [None]
  - FEELING ABNORMAL [None]
  - MOBILITY DECREASED [None]
  - TREMOR [None]
